FAERS Safety Report 8226018-9 (Version None)
Quarter: 2012Q1

REPORT INFORMATION
  Report Type: 
  Country: None (occurrence: None)
  Receive Date: 20120321
  Receipt Date: 20120317
  Transmission Date: 20120608
  Serious: No
  Sender: FDA-Public Use
  Company Number: US-PFIZER INC-2012070157

PATIENT
  Sex: Female

DRUGS (1)
  1. GABAPENTIN [Suspect]
     Indication: ARTHRITIS
     Dosage: 900 MG A DAY

REACTIONS (3)
  - CONFUSIONAL STATE [None]
  - AMNESIA [None]
  - DEPRESSION [None]
